FAERS Safety Report 18285309 (Version 1)
Quarter: 2020Q3

REPORT INFORMATION
  Report Type: Spontaneous
  Country: US (occurrence: US)
  Receive Date: 20200918
  Receipt Date: 20200918
  Transmission Date: 20201103
  Serious: No
  Sender: FDA-Public Use
  Company Number: US-009507513-2009USA005546

PATIENT
  Age: 30 Year
  Sex: Female

DRUGS (1)
  1. NEXPLANON [Suspect]
     Active Substance: ETONOGESTREL
     Dosage: 1 DOSAGE FORM
     Route: 059
     Dates: start: 20180314

REACTIONS (4)
  - Hypoaesthesia [Unknown]
  - Complication of device removal [Not Recovered/Not Resolved]
  - Inappropriate schedule of product administration [Unknown]
  - Implant site pain [Unknown]

NARRATIVE: CASE EVENT DATE: 20180314
